FAERS Safety Report 6543921-6 (Version None)
Quarter: 2010Q1

REPORT INFORMATION
  Report Type: 
  Country: None (occurrence: None)
  Receive Date: 20100120
  Receipt Date: 20100114
  Transmission Date: 20100710
  Serious: Yes (Hospitalization, Other)
  Sender: FDA-Public Use
  Company Number: GB-TEVA-221119ISR

PATIENT
  Age: 78 Year
  Sex: Male

DRUGS (1)
  1. LANSOPRAZOLE [Suspect]
     Indication: HAEMATEMESIS
     Route: 048
     Dates: start: 20090130, end: 20090208

REACTIONS (2)
  - HYPOMAGNESAEMIA [None]
  - HYPONATRAEMIA [None]
